FAERS Safety Report 5921007-9 (Version None)
Quarter: 2008Q4

REPORT INFORMATION
  Report Type: 
  Country: None (occurrence: None)
  Receive Date: 20081016
  Receipt Date: 20081010
  Transmission Date: 20090506
  Serious: Yes (Disabling)
  Sender: FDA-Public Use
  Company Number: JP-ASTRAZENECA-2008AP07924

PATIENT
  Age: 60 Year
  Sex: Female

DRUGS (1)
  1. NOLVADEX TABLETS 10MG [Suspect]
     Indication: BREAST CANCER
     Route: 048
     Dates: start: 20080101, end: 20080901

REACTIONS (1)
  - CEREBRAL INFARCTION [None]
